FAERS Safety Report 8427898-4 (Version None)
Quarter: 2012Q2

REPORT INFORMATION
  Report Type: 
  Country: None (occurrence: None)
  Receive Date: 20120611
  Receipt Date: 20120529
  Transmission Date: 20120825
  Serious: No
  Sender: FDA-Public Use
  Company Number: US-ASTRAZENECA-2012SE35140

PATIENT
  Sex: Male

DRUGS (10)
  1. SEROQUEL [Suspect]
     Indication: OBSESSIVE-COMPULSIVE DISORDER
     Route: 048
  2. SEROQUEL [Suspect]
     Indication: DEPRESSION
     Route: 048
  3. SEROQUEL [Suspect]
     Route: 048
  4. SEROQUEL [Suspect]
     Route: 048
     Dates: start: 20020101
  5. SEROQUEL [Suspect]
     Route: 048
     Dates: start: 20020101
  6. SEROQUEL [Suspect]
     Route: 048
  7. SEROQUEL [Suspect]
     Route: 048
  8. SEROQUEL [Suspect]
     Dosage: HALF TABLET
     Route: 048
  9. SEROQUEL [Suspect]
     Dosage: HALF TABLET
     Route: 048
  10. SEROQUEL [Suspect]
     Route: 048

REACTIONS (2)
  - DIARRHOEA [None]
  - INTENTIONAL DRUG MISUSE [None]
